FAERS Safety Report 16844735 (Version 1)
Quarter: 2019Q4

REPORT INFORMATION
  Report Type: Spontaneous
  Country: US (occurrence: US)
  Receive Date: 20190924
  Receipt Date: 20190924
  Transmission Date: 20200122
  Serious: Yes (Disabling, Other)
  Sender: FDA-Public Use
  Company Number: None

PATIENT
  Age: 72 Year
  Sex: Female
  Weight: 75.15 kg

DRUGS (9)
  1. BI PAP [Concomitant]
     Active Substance: DEVICE
  2. ELIQUIS [Concomitant]
     Active Substance: APIXABAN
  3. METOPROLOL. [Concomitant]
     Active Substance: METOPROLOL
  4. AMIODARONE [Concomitant]
     Active Substance: AMIODARONE
  5. SYNTHROID [Concomitant]
     Active Substance: LEVOTHYROXINE SODIUM
  6. LASIX [Concomitant]
     Active Substance: FUROSEMIDE
  7. LOSARTAN. [Concomitant]
     Active Substance: LOSARTAN
  8. KANU [Concomitant]
  9. COLCHICINE. [Suspect]
     Active Substance: COLCHICINE
     Indication: DRESSLER^S SYNDROME
     Dosage: ?          QUANTITY:60 TABLET(S);?
     Route: 048
     Dates: start: 20190728, end: 20190912

REACTIONS (3)
  - Loss of personal independence in daily activities [None]
  - Muscular weakness [None]
  - Hypokinesia [None]

NARRATIVE: CASE EVENT DATE: 20190909
